FAERS Safety Report 19743983 (Version 1)
Quarter: 2021Q3

REPORT INFORMATION
  Report Type: Spontaneous
  Country: US (occurrence: US)
  Receive Date: 20210823
  Receipt Date: 20210823
  Transmission Date: 20211014
  Serious: No
  Sender: FDA-Public Use
  Company Number: None

PATIENT
  Age: 75 Year
  Sex: Female
  Weight: 92.25 kg

DRUGS (14)
  1. METFORMIN ER [Concomitant]
     Active Substance: METFORMIN HYDROCHLORIDE
  2. GLIPIZIDE ER [Concomitant]
     Active Substance: GLIPIZIDE
  3. ALLEGRA [Concomitant]
     Active Substance: FEXOFENADINE HYDROCHLORIDE
  4. NORVASC [Concomitant]
     Active Substance: AMLODIPINE BESYLATE
  5. CPAP [Concomitant]
     Active Substance: DEVICE
  6. OXYGEN. [Concomitant]
     Active Substance: OXYGEN
  7. COMPLETE MULTIVITAMIN W/MINERALS [Concomitant]
  8. SLOW K POTASSIUM [Concomitant]
  9. BISOPROLOL [Concomitant]
     Active Substance: BISOPROLOL
  10. NOVOLOG [Concomitant]
     Active Substance: INSULIN ASPART
  11. JARDIANCE [Suspect]
     Active Substance: EMPAGLIFLOZIN
     Indication: TYPE 2 DIABETES MELLITUS
     Dosage: ?          QUANTITY:1 CAPSULE(S);?
     Route: 048
     Dates: start: 20210607, end: 20210614
  12. LATANOPROST. [Concomitant]
     Active Substance: LATANOPROST
  13. ULTIMATE PROBIOTIC FORMULA CALCIUM W/ VITAMIN D [Concomitant]
  14. TRIPLE MAGNESIUM COMPLEX [Concomitant]

REACTIONS (1)
  - Rash pruritic [None]

NARRATIVE: CASE EVENT DATE: 20210614
